FAERS Safety Report 17506890 (Version 1)
Quarter: 2020Q1

REPORT INFORMATION
  Report Type: Spontaneous
  Country: US (occurrence: US)
  Receive Date: 20200305
  Receipt Date: 20200305
  Transmission Date: 20200409
  Serious: No
  Sender: FDA-Public Use
  Company Number: US-ROCHE-2480635

PATIENT
  Sex: Female

DRUGS (11)
  1. DISULFIRAM. [Concomitant]
     Active Substance: DISULFIRAM
     Route: 065
  2. HYDROCODONE [Concomitant]
     Active Substance: HYDROCODONE
  3. HYDROXYZINE [Concomitant]
     Active Substance: HYDROXYZINE HYDROCHLORIDE
     Route: 065
  4. EPINEPHRINE. [Concomitant]
     Active Substance: EPINEPHRINE
  5. NITROGLYCERIN. [Concomitant]
     Active Substance: NITROGLYCERIN
  6. XOLAIR [Suspect]
     Active Substance: OMALIZUMAB
     Indication: URTICARIA
     Dosage: PFS 150 MG/ML
     Route: 058
  7. ESOMEPRAZOLE. [Concomitant]
     Active Substance: ESOMEPRAZOLE MAGNESIUM
     Route: 065
  8. MECLIZINE HCL [Concomitant]
     Active Substance: MECLIZINE HYDROCHLORIDE
     Route: 065
  9. PROTRIPTYLINE [Concomitant]
     Active Substance: PROTRIPTYLINE
     Route: 065
  10. POTASSIUM [Concomitant]
     Active Substance: POTASSIUM
  11. LEVOCETIRIZINE [Concomitant]
     Active Substance: LEVOCETIRIZINE
     Route: 065

REACTIONS (1)
  - Urticaria [Not Recovered/Not Resolved]
